FAERS Safety Report 9380810 (Version 3)
Quarter: 2014Q1

REPORT INFORMATION
  Report Type: Spontaneous
  Country: US (occurrence: US)
  Receive Date: 20130702
  Receipt Date: 20140304
  Transmission Date: 20141002
  Serious: Yes (Hospitalization)
  Sender: FDA-Public Use
  Company Number: US-B.I. PHARMACEUTICALS,INC./RIDGEFIELD-2013-BI-18748BP

PATIENT
  Sex: Female
  Weight: 53.98 kg

DRUGS (12)
  1. PRADAXA [Suspect]
     Indication: ATRIAL FIBRILLATION
     Dosage: 300 MG
     Route: 048
     Dates: start: 20101111
  2. VITAMIN C [Concomitant]
     Dosage: 1000 MG
     Route: 048
  3. ASPIRIN [Concomitant]
     Dosage: 81 MG
     Route: 048
  4. LIPITOR [Concomitant]
     Dosage: 80 MG
     Route: 048
  5. LANOXIN [Concomitant]
     Dosage: 0.125 MG
     Route: 048
  6. CARTIA XT [Concomitant]
     Dosage: 480 MG
     Route: 048
  7. PEPCID [Concomitant]
     Dosage: 20 MG
     Route: 048
  8. ZAROXOLYN [Concomitant]
     Route: 048
  9. BENICAR [Concomitant]
     Dosage: 40 MG
     Route: 048
  10. PERCOCET [Concomitant]
     Route: 048
  11. KLOR-CON [Concomitant]
     Dosage: 20 MEQ
     Route: 048
  12. VITAMIN D [Concomitant]
     Dosage: 185 MG
     Route: 048

REACTIONS (2)
  - Lower gastrointestinal haemorrhage [Unknown]
  - Anaemia [Unknown]
